FAERS Safety Report 9122614 (Version 2)
Quarter: 2013Q1

REPORT INFORMATION
  Report Type: Spontaneous
  Country: US (occurrence: None)
  Receive Date: 20130131
  Receipt Date: 20130213
  Transmission Date: 20140127
  Serious: Yes (Hospitalization)
  Sender: FDA-Public Use
  Company Number: 2013-013

PATIENT
  Age: 55 Year
  Sex: Male

DRUGS (1)
  1. PRIALT [Suspect]
     Indication: NEUROPATHY PERIPHERAL
     Route: 037
     Dates: start: 201212

REACTIONS (4)
  - Personality change [None]
  - Psychotic behaviour [None]
  - Physical assault [None]
  - Hallucination, auditory [None]
